FAERS Safety Report 7761755-1 (Version None)
Quarter: 2011Q3

REPORT INFORMATION
  Report Type: 
  Country: None (occurrence: None)
  Receive Date: 20110920
  Receipt Date: 20110915
  Transmission Date: 20111222
  Serious: Yes (Death)
  Sender: FDA-Public Use
  Company Number: PHEH2011US02794

PATIENT
  Age: 79 Year
  Sex: Male

DRUGS (2)
  1. TOBI [Suspect]
     Indication: RENAL NEOPLASM
     Dosage: 300 MG, BID
     Dates: start: 20110816
  2. SUTENT [Concomitant]

REACTIONS (1)
  - LUNG NEOPLASM MALIGNANT [None]
